FAERS Safety Report 15546376 (Version 1)
Quarter: 2018Q4

REPORT INFORMATION
  Report Type: Spontaneous
  Country: NL (occurrence: NL)
  Receive Date: 20181024
  Receipt Date: 20181024
  Transmission Date: 20190205
  Serious: Yes (Other)
  Sender: FDA-Public Use
  Company Number: NL-TEVA-2018-NL-967948

PATIENT
  Age: 69 Year
  Sex: Female

DRUGS (8)
  1. CALC CHEW D3 500MG-800IE, [Concomitant]
     Active Substance: CALCIUM\CHOLECALCIFEROL
     Dosage: 1 DOSAGE FORMS DAILY;
     Dates: start: 20170707
  2. PARACETAMOL [Concomitant]
     Active Substance: ACETAMINOPHEN
     Dosage: 2D1T
  3. VITAMINE C [Concomitant]
     Active Substance: ASCORBIC ACID
     Route: 065
  4. MAGNESIUM [Concomitant]
     Active Substance: MAGNESIUM
     Route: 065
  5. METOPROLOL TABLET MET GEREGULEERDE AFGIFTE, 50 MG (MILLIGRAM) // SANDO [Suspect]
     Active Substance: METOPROLOL
     Indication: HYPERTENSION
     Dosage: 50 MILLIGRAM DAILY; 1XPER DAY 1 CAPSULE
     Dates: start: 20180827
  6. IBUPROFEN 400MG [Concomitant]
     Active Substance: IBUPROFEN
     Dosage: 2D1T
  7. IRBESARTAN-HCT 150/12,5 MG [Concomitant]
     Dosage: 1 DOSAGE FORMS DAILY;
     Dates: start: 20080606
  8. OMEPRAZOL MSR 20MG [Concomitant]
     Dosage: 20 MILLIGRAM DAILY;
     Dates: start: 20170522

REACTIONS (3)
  - Heart rate increased [Recovered/Resolved]
  - Therapeutic response unexpected [Recovered/Resolved]
  - Arrhythmia [Recovered/Resolved]

NARRATIVE: CASE EVENT DATE: 20180827
